FAERS Safety Report 9088495 (Version 2)
Quarter: 2013Q3

REPORT INFORMATION
  Report Type: Report from Study
  Country: MX (occurrence: MX)
  Receive Date: 20130201
  Receipt Date: 20130802
  Transmission Date: 20140515
  Serious: Yes (Death, Hospitalization)
  Sender: FDA-Public Use
  Company Number: PHHY2013MX009239

PATIENT
  Age: 77 Year
  Sex: Female

DRUGS (1)
  1. CO-DIOVAN [Suspect]
     Indication: HYPERTENSION
     Dosage: 1 DF, DAILY (160 MG VALS, 12.5 MG HYDR)
     Route: 048
     Dates: start: 2011

REACTIONS (2)
  - Cervix carcinoma [Fatal]
  - Feeling abnormal [Unknown]
